FAERS Safety Report 11623920 (Version 1)
Quarter: 2015Q4

REPORT INFORMATION
  Report Type: Spontaneous
  Country: US (occurrence: US)
  Receive Date: 20151013
  Receipt Date: 20151013
  Transmission Date: 20160304
  Serious: No
  Sender: FDA-Public Use
  Company Number: US-JNJFOC-20150819857

PATIENT
  Age: 34 Year
  Sex: Male
  Weight: 72.58 kg

DRUGS (2)
  1. MENS ROGAINE EXTRA STRENGTH [Suspect]
     Active Substance: MINOXIDIL
     Route: 061
  2. MENS ROGAINE EXTRA STRENGTH [Suspect]
     Active Substance: MINOXIDIL
     Indication: ALOPECIA
     Dosage: LITTLE LESS THAN 1ML
     Route: 061
     Dates: end: 20150824

REACTIONS (9)
  - Paraesthesia [Not Recovered/Not Resolved]
  - Hair disorder [Not Recovered/Not Resolved]
  - Burning sensation [Not Recovered/Not Resolved]
  - Application site inflammation [Not Recovered/Not Resolved]
  - Underdose [Unknown]
  - Pruritus [Not Recovered/Not Resolved]
  - Secretion discharge [Not Recovered/Not Resolved]
  - Liquid product physical issue [Unknown]
  - Dry skin [Not Recovered/Not Resolved]
